FAERS Safety Report 9655445 (Version 2)
Quarter: 2013Q4

REPORT INFORMATION
  Report Type: Spontaneous
  Country: US (occurrence: US)
  Receive Date: 20131029
  Receipt Date: 20131029
  Transmission Date: 20140711
  Serious: No
  Sender: FDA-Public Use
  Company Number: US-PURDUE-USA-2012-0083740

PATIENT
  Age: 40 Year
  Sex: Male
  Weight: 95.24 kg

DRUGS (3)
  1. OXYCONTIN (NDA 22-272) [Suspect]
     Indication: PAIN
     Dosage: 80 MG, 2 - 3 TIMES DAILY
  2. OXYCONTIN (NDA 22-272) [Suspect]
     Dosage: 80 MG, UNK
     Dates: start: 20070102, end: 2011
  3. SOMA [Concomitant]
     Indication: PRODUCT USED FOR UNKNOWN INDICATION
     Dosage: 350 MG, UNK

REACTIONS (7)
  - Pain [Unknown]
  - Dyspepsia [Unknown]
  - Unevaluable event [Unknown]
  - Drug effect decreased [Unknown]
  - Nausea [Recovered/Resolved]
  - Abdominal pain upper [Recovered/Resolved]
  - Drug ineffective [Unknown]
